FAERS Safety Report 17888496 (Version 2)
Quarter: 2020Q3

REPORT INFORMATION
  Report Type: Spontaneous
  Country: US (occurrence: US)
  Receive Date: 20200612
  Receipt Date: 20200717
  Transmission Date: 20201103
  Serious: Yes (Hospitalization)
  Sender: FDA-Public Use
  Company Number: US-ROCHE-2620852

PATIENT
  Age: 67 Year
  Sex: Female

DRUGS (33)
  1. MAGNESIUM OXIDE. [Concomitant]
     Active Substance: MAGNESIUM OXIDE
  2. METFORMIN [Concomitant]
     Active Substance: METFORMIN HYDROCHLORIDE
  3. OXYBUTYNIN. [Concomitant]
     Active Substance: OXYBUTYNIN CHLORIDE
  4. ROPINIROLE. [Concomitant]
     Active Substance: ROPINIROLE
  5. SERTRALINE [Concomitant]
     Active Substance: SERTRALINE HYDROCHLORIDE
  6. SIMVASTATIN. [Concomitant]
     Active Substance: SIMVASTATIN
  7. TERCONAZOLE. [Concomitant]
     Active Substance: TERCONAZOLE
  8. AZITHROMYCIN ANHYDROUS. [Concomitant]
     Active Substance: AZITHROMYCIN ANHYDROUS
  9. FLUCONAZOLE. [Concomitant]
     Active Substance: FLUCONAZOLE
  10. IPRATROPIUM [Concomitant]
     Active Substance: IPRATROPIUM
  11. MONTELUKAST [Concomitant]
     Active Substance: MONTELUKAST SODIUM
  12. BREO ELLIPTA [Concomitant]
     Active Substance: FLUTICASONE FUROATE\VILANTEROL TRIFENATATE
  13. DICYCLOMINE [Concomitant]
     Active Substance: DICYCLOMINE HYDROCHLORIDE
  14. OMEPRAZOLE. [Concomitant]
     Active Substance: OMEPRAZOLE
  15. PREDNISONE. [Concomitant]
     Active Substance: PREDNISONE
  16. VIRTUSSIN AC [Concomitant]
     Active Substance: CODEINE PHOSPHATE\GUAIFENESIN
  17. CEFDINIR. [Concomitant]
     Active Substance: CEFDINIR
  18. FUROSEMIDE. [Concomitant]
     Active Substance: FUROSEMIDE
  19. GABAPENTIN. [Concomitant]
     Active Substance: GABAPENTIN
  20. GLIMEPIRIDE. [Concomitant]
     Active Substance: GLIMEPIRIDE
  21. ESBRIET [Suspect]
     Active Substance: PIRFENIDONE
     Indication: INTERSTITIAL LUNG DISEASE
     Dosage: DOSE: 2SYR
     Route: 048
     Dates: start: 20180803
  22. FLUTICASONE. [Concomitant]
     Active Substance: FLUTICASONE
  23. LEVOFLOXACIN. [Concomitant]
     Active Substance: LEVOFLOXACIN
  24. DILTIAZEM. [Concomitant]
     Active Substance: DILTIAZEM
  25. MELOXICAM. [Concomitant]
     Active Substance: MELOXICAM
  26. RANITIDINE. [Concomitant]
     Active Substance: RANITIDINE
  27. MUCINEX [Concomitant]
     Active Substance: GUAIFENESIN
  28. FAMOTIDINE. [Concomitant]
     Active Substance: FAMOTIDINE
  29. SYMBICORT [Concomitant]
     Active Substance: BUDESONIDE\FORMOTEROL FUMARATE DIHYDRATE
  30. ESBRIET [Suspect]
     Active Substance: PIRFENIDONE
     Dosage: 3 CAPSULES
     Route: 048
  31. BENZONATATE. [Concomitant]
     Active Substance: BENZONATATE
  32. CLONAZEPAM. [Concomitant]
     Active Substance: CLONAZEPAM
  33. CLOTRIMAZOLE. [Concomitant]
     Active Substance: CLOTRIMAZOLE

REACTIONS (1)
  - Pneumonia [Unknown]

NARRATIVE: CASE EVENT DATE: 202005
